FAERS Safety Report 14721377 (Version 1)
Quarter: 2018Q2

REPORT INFORMATION
  Report Type: Report from Study
  Country: None (occurrence: US)
  Receive Date: 20180405
  Receipt Date: 20180405
  Transmission Date: 20180711
  Serious: Yes (Other)
  Sender: FDA-Public Use
  Company Number: US-ABBVIE-17P-163-2188507-00

PATIENT
  Sex: Male

DRUGS (1)
  1. VENCLEXTA [Suspect]
     Active Substance: VENETOCLAX
     Indication: CHRONIC LYMPHOCYTIC LEUKAEMIA
     Route: 048
     Dates: start: 20170311

REACTIONS (29)
  - Steatohepatitis [Unknown]
  - Haematocrit decreased [Unknown]
  - Mean cell haemoglobin increased [Unknown]
  - Fatigue [Unknown]
  - Haemoglobin decreased [Unknown]
  - White blood cell count decreased [Unknown]
  - Red blood cell count decreased [Unknown]
  - Pyrexia [Unknown]
  - Hepatic fibrosis [Unknown]
  - Monocyte percentage increased [Unknown]
  - Splenomegaly [Unknown]
  - Hepatic steatosis [Unknown]
  - Intestinal mucosal hypertrophy [Unknown]
  - Alanine aminotransferase increased [Unknown]
  - Joint swelling [Unknown]
  - Mean cell haemoglobin concentration increased [Unknown]
  - Squamous cell carcinoma [Unknown]
  - Hepatic function abnormal [Unknown]
  - Hepatosplenomegaly [Unknown]
  - Bladder disorder [Unknown]
  - Blood glucose increased [Unknown]
  - Blood urea increased [Unknown]
  - Mental status changes [Unknown]
  - Lymphadenopathy [Unknown]
  - Gout [Unknown]
  - Prostatomegaly [Unknown]
  - Blood albumin increased [Unknown]
  - Neutrophil percentage increased [Unknown]
  - Neutropenia [Unknown]
